FAERS Safety Report 9315814 (Version 1)
Quarter: 2013Q2

REPORT INFORMATION
  Report Type: Spontaneous
  Country: US (occurrence: US)
  Receive Date: 20130529
  Receipt Date: 20130529
  Transmission Date: 20140414
  Serious: No
  Sender: FDA-Public Use
  Company Number: US-009507513-1305USA016608

PATIENT
  Sex: Female
  Weight: 86.17 kg

DRUGS (1)
  1. MIRALAX [Suspect]
     Indication: PRODUCT USED FOR UNKNOWN INDICATION
     Dosage: 17 G, UNKNOWN
     Route: 048
     Dates: start: 2012, end: 2013

REACTIONS (5)
  - Inappropriate schedule of drug administration [Unknown]
  - Wrong technique in drug usage process [Unknown]
  - Off label use [Unknown]
  - Product taste abnormal [Unknown]
  - Product odour abnormal [Unknown]
